FAERS Safety Report 4718084-X (Version None)
Quarter: 2005Q3

REPORT INFORMATION
  Report Type: 
  Country: None (occurrence: None)
  Receive Date: 20050720
  Receipt Date: 20050713
  Transmission Date: 20060218
  Serious: Yes (Other)
  Sender: FDA-Public Use
  Company Number: US-BRISTOL-MYERS SQUIBB COMPANY-13036314

PATIENT
  Age: 65 Year
  Sex: Female

DRUGS (4)
  1. METFORMIN HCL [Suspect]
     Route: 048
     Dates: start: 20050501
  2. LANTUS [Suspect]
     Dosage: DOSAGE FORM = UNITS FOR INJECTION
     Dates: start: 20050301
  3. PREMARIN [Concomitant]
  4. PRILOSEC [Concomitant]

REACTIONS (5)
  - BURNING SENSATION [None]
  - ERYTHEMA [None]
  - PAIN IN EXTREMITY [None]
  - SKIN IRRITATION [None]
  - VULVITIS [None]
